FAERS Safety Report 10660052 (Version 1)
Quarter: 2014Q4

REPORT INFORMATION
  Report Type: Spontaneous
  Country: US (occurrence: US)
  Receive Date: 20141217
  Receipt Date: 20141217
  Transmission Date: 20150529
  Serious: Yes (Other)
  Sender: FDA-Public Use
  Company Number: US-APOTEX-2014AP006159

PATIENT
  Age: 33 Year
  Sex: Female

DRUGS (4)
  1. AMIODARONE HYDROCHLORIDE. [Suspect]
     Active Substance: AMIODARONE HYDROCHLORIDE
     Indication: ATRIAL FLUTTER
     Route: 065
  2. METOPROLOL [Concomitant]
     Active Substance: METOPROLOL
     Indication: ATRIAL FLUTTER
     Route: 065
  3. COUMADIN [Concomitant]
     Active Substance: WARFARIN SODIUM
     Indication: ATRIAL FLUTTER
     Route: 065
  4. LISINOPRIL. [Concomitant]
     Active Substance: LISINOPRIL
     Indication: ATRIAL FLUTTER
     Route: 065

REACTIONS (2)
  - Toxicity to various agents [Recovered/Resolved]
  - Drug-induced liver injury [Recovered/Resolved]
